FAERS Safety Report 4770726-9 (Version None)
Quarter: 2005Q3

REPORT INFORMATION
  Report Type: 
  Country: None (occurrence: None)
  Receive Date: 20050914
  Receipt Date: 20050829
  Transmission Date: 20060218
  Serious: Yes (Hospitalization)
  Sender: FDA-Public Use
  Company Number: RU-2005-017748

PATIENT
  Sex: Male

DRUGS (2)
  1. BETAFERON 250 UG, 500 UG AND COPAXONE (CODE NOT BROKEN) INJECTION, 500 [Suspect]
     Indication: MULTIPLE SCLEROSIS
     Dosage: 8 OR 16 MIU, EVERY 2D, SUBCTUANEOUS
     Route: 058
     Dates: start: 20050523
  2. PARACETAMOL [Concomitant]

REACTIONS (1)
  - ASTHMA [None]
